FAERS Safety Report 8017385-X (Version None)
Quarter: 2012Q1

REPORT INFORMATION
  Report Type: 
  Country: None (occurrence: None)
  Receive Date: 20120102
  Receipt Date: 20111222
  Transmission Date: 20120608
  Serious: Yes (Other)
  Sender: FDA-Public Use
  Company Number: FR-ROCHE-1025985

PATIENT
  Sex: Female

DRUGS (4)
  1. ANTIDEPRESSANTS [Concomitant]
  2. XOLAIR [Suspect]
     Indication: ASTHMA
     Route: 058
  3. XOLAIR [Suspect]
     Route: 058
     Dates: start: 20111221
  4. LEVOTHYROXINE SODIUM [Concomitant]

REACTIONS (7)
  - FATIGUE [None]
  - TYPE 2 DIABETES MELLITUS [None]
  - HEPATIC STEATOSIS [None]
  - NAUSEA [None]
  - WEIGHT INCREASED [None]
  - ASTHMA [None]
  - POOR QUALITY SLEEP [None]
